FAERS Safety Report 21521860 (Version 2)
Quarter: 2022Q4

REPORT INFORMATION
  Report Type: Report from Study
  Country: AR (occurrence: AR)
  Receive Date: 20221028
  Receipt Date: 20221114
  Transmission Date: 20230113
  Serious: Yes (Death, Hospitalization, Other)
  Sender: FDA-Public Use
  Company Number: AR-AMGEN-ARGSL2022068872

PATIENT
  Age: 51 Year
  Sex: Male

DRUGS (1)
  1. VECTIBIX [Suspect]
     Active Substance: PANITUMUMAB
     Indication: Colorectal cancer metastatic
     Dosage: UNK UNK, Q2WK EVERY 14 DAYS
     Route: 065
     Dates: start: 20220222, end: 20220827

REACTIONS (30)
  - Death [Fatal]
  - Constipation [Not Recovered/Not Resolved]
  - Dehydration [Not Recovered/Not Resolved]
  - Blood bilirubin increased [Not Recovered/Not Resolved]
  - Facial bones fracture [Not Recovered/Not Resolved]
  - Biliary obstruction [Not Recovered/Not Resolved]
  - Vomiting [Not Recovered/Not Resolved]
  - Pyrexia [Not Recovered/Not Resolved]
  - Mood altered [Unknown]
  - Limb injury [Unknown]
  - General physical health deterioration [Not Recovered/Not Resolved]
  - Lip dry [Unknown]
  - Insomnia [Not Recovered/Not Resolved]
  - Pain in extremity [Not Recovered/Not Resolved]
  - Dizziness [Unknown]
  - Anxiety [Unknown]
  - Rash [Not Recovered/Not Resolved]
  - Dry skin [Unknown]
  - Fatigue [Unknown]
  - Epistaxis [Unknown]
  - Swelling [Not Recovered/Not Resolved]
  - Ligament sprain [Not Recovered/Not Resolved]
  - Head injury [Not Recovered/Not Resolved]
  - Ear injury [Not Recovered/Not Resolved]
  - Hepatic pain [Not Recovered/Not Resolved]
  - Somnolence [Unknown]
  - Nasopharyngitis [Unknown]
  - Skin discolouration [Unknown]
  - Cholelithiasis [Unknown]
  - Headache [Unknown]

NARRATIVE: CASE EVENT DATE: 20220101
